FAERS Safety Report 20745613 (Version 3)
Quarter: 2022Q2

REPORT INFORMATION
  Report Type: Report from Study
  Country: FR (occurrence: None)
  Receive Date: 20220425
  Receipt Date: 20220614
  Transmission Date: 20220721
  Serious: Yes (Hospitalization)
  Sender: FDA-Public Use
  Company Number: FR-ROCHE-3079084

PATIENT
  Age: 37 Year
  Sex: Female
  Weight: 66 kg

DRUGS (25)
  1. ADO-TRASTUZUMAB EMTANSINE [Suspect]
     Active Substance: ADO-TRASTUZUMAB EMTANSINE
     Indication: HER2 positive breast cancer
     Dosage: DATE OF MOST RECENT DOSE OF STUDY DRUG PRIOR TO AE + SAE: 01/APR/2022 (234 MG/KG)
     Route: 042
     Dates: start: 20211201
  2. ATEZOLIZUMAB [Suspect]
     Active Substance: ATEZOLIZUMAB
     Indication: HER2 positive breast cancer
     Dosage: DATE OF MOST RECENT DOSE OF STUDY DRUG PRIOR TO AE + SAE: 01/APR/2022
     Route: 041
     Dates: start: 20211201
  3. ANASTROZOLE [Concomitant]
     Active Substance: ANASTROZOLE
     Route: 048
     Dates: start: 20220218
  4. GOSERELIN [Concomitant]
     Active Substance: GOSERELIN
     Route: 011
     Dates: start: 20220218
  5. ELIQUIS [Concomitant]
     Active Substance: APIXABAN
     Dates: start: 20211201
  6. IALUSET [Concomitant]
     Dates: start: 20211223
  7. HEXOMEDINE (FRANCE) [Concomitant]
     Indication: Dermatitis acneiform
     Dates: start: 20220131
  8. ACETAMINOPHEN [Concomitant]
     Active Substance: ACETAMINOPHEN
     Dates: start: 20220218
  9. OXYGENATED WATER [Concomitant]
     Indication: Gingival bleeding
     Dates: start: 20220311
  10. IXPRIM [Concomitant]
     Active Substance: ACETAMINOPHEN\TRAMADOL HYDROCHLORIDE
     Indication: Influenza like illness
     Dates: start: 20220311
  11. VASELINE PURE [Concomitant]
     Active Substance: PETROLATUM
     Dates: start: 20220311
  12. SODIUM ALGINATE [Concomitant]
     Active Substance: SODIUM ALGINATE
     Indication: Gingival bleeding
     Dates: start: 20220311
  13. SODIUM BICARBONATE [Concomitant]
     Active Substance: SODIUM BICARBONATE
     Indication: Gingival bleeding
     Dates: start: 20220311
  14. EBASTINE [Concomitant]
     Active Substance: EBASTINE
     Indication: Rhinitis allergic
     Dates: start: 20220131
  15. TRANEXAMIC ACID [Concomitant]
     Active Substance: TRANEXAMIC ACID
     Dates: start: 20220401
  16. DEXCHLORPHENIRAMINE [Concomitant]
     Active Substance: DEXCHLORPHENIRAMINE
     Indication: Premedication
     Dates: start: 20220401, end: 20220401
  17. DEXCHLORPHENIRAMINE [Concomitant]
     Active Substance: DEXCHLORPHENIRAMINE
     Dates: start: 20220422, end: 20220422
  18. DEXCHLORPHENIRAMINE [Concomitant]
     Active Substance: DEXCHLORPHENIRAMINE
     Dates: start: 20220513, end: 20220513
  19. DEXCHLORPHENIRAMINE [Concomitant]
     Active Substance: DEXCHLORPHENIRAMINE
     Dates: start: 20220602, end: 20220602
  20. HUMAN RED BLOOD CELL [Concomitant]
     Active Substance: HUMAN RED BLOOD CELL
     Dates: start: 20220412, end: 20220412
  21. PROPACETAMOL [Concomitant]
     Active Substance: PROPACETAMOL
     Dates: start: 20220401, end: 20220401
  22. PROPACETAMOL [Concomitant]
     Active Substance: PROPACETAMOL
     Dates: start: 20220422, end: 20220422
  23. PROPACETAMOL [Concomitant]
     Active Substance: PROPACETAMOL
     Dates: start: 20220513, end: 20220513
  24. PROPACETAMOL [Concomitant]
     Active Substance: PROPACETAMOL
     Dates: start: 20220602, end: 20220602
  25. PHLOROGLUCINOL [Concomitant]
     Active Substance: PHLOROGLUCINOL
     Dates: start: 20220416, end: 20220513

REACTIONS (1)
  - Pneumonia [Recovered/Resolved]

NARRATIVE: CASE EVENT DATE: 20220411
